FAERS Safety Report 6153368-2 (Version None)
Quarter: 2009Q2

REPORT INFORMATION
  Report Type: 
  Country: None (occurrence: None)
  Receive Date: 20090413
  Receipt Date: 20090403
  Transmission Date: 20091009
  Serious: Yes (Death, Other)
  Sender: FDA-Public Use
  Company Number: BR-PFIZER INC-2009182830

PATIENT

DRUGS (2)
  1. LIPITOR [Suspect]
     Indication: LIPID METABOLISM DISORDER
     Dosage: 10 MG, 1X/DAY
     Route: 048
     Dates: start: 20080101, end: 20090216
  2. INSULIN [Concomitant]

REACTIONS (3)
  - ABDOMINAL PAIN [None]
  - DEATH [None]
  - LOSS OF CONSCIOUSNESS [None]
